FAERS Safety Report 23504825 (Version 1)
Quarter: 2024Q1

REPORT INFORMATION
  Report Type: Spontaneous
  Country: US (occurrence: US)
  Receive Date: 20240209
  Receipt Date: 20240209
  Transmission Date: 20240410
  Serious: Yes (Other)
  Sender: FDA-Public Use
  Company Number: US-JNJFOC-20240218824

PATIENT
  Age: 6 Decade
  Sex: Female

DRUGS (3)
  1. SPRAVATO [Suspect]
     Active Substance: ESKETAMINE
     Indication: Depression
     Dates: start: 202302
  2. SPRAVATO [Suspect]
     Active Substance: ESKETAMINE
     Dates: start: 202311, end: 20240105
  3. SPRAVATO [Suspect]
     Active Substance: ESKETAMINE
     Dates: start: 20240109, end: 20240111

REACTIONS (4)
  - Suicidal ideation [Unknown]
  - Homicidal ideation [Unknown]
  - Off label use [Unknown]
  - Drug ineffective [Unknown]

NARRATIVE: CASE EVENT DATE: 20231201
